FAERS Safety Report 6912558-9 (Version None)
Quarter: 2010Q3

REPORT INFORMATION
  Report Type: 
  Country: None (occurrence: None)
  Receive Date: 20100806
  Receipt Date: 20080804
  Transmission Date: 20110219
  Serious: No
  Sender: FDA-Public Use
  Company Number: US-PFIZER INC-2008066383

PATIENT
  Sex: Male
  Weight: 86.4 kg

DRUGS (3)
  1. DETROL LA [Suspect]
     Indication: POLLAKIURIA
     Route: 048
     Dates: start: 20080701
  2. PRILOSEC [Concomitant]
  3. LEVOTHROID [Concomitant]

REACTIONS (1)
  - HEART RATE INCREASED [None]
